FAERS Safety Report 24066077 (Version 1)
Quarter: 2024Q3

REPORT INFORMATION
  Report Type: Spontaneous
  Country: CN (occurrence: CN)
  Receive Date: 20240709
  Receipt Date: 20240709
  Transmission Date: 20241016
  Serious: Yes (Hospitalization, Other)
  Sender: NOVARTIS
  Company Number: CN-002147023-NVSC2024CN141495

PATIENT
  Age: 41 Year
  Sex: Male
  Weight: 85 kg

DRUGS (1)
  1. ENTRESTO [Suspect]
     Active Substance: SACUBITRIL\VALSARTAN
     Indication: Hypertension
     Dosage: 100 MG, BID
     Route: 048
     Dates: start: 20240622, end: 20240622

REACTIONS (7)
  - Laryngopharyngitis [Recovered/Resolved]
  - Angioedema [Recovering/Resolving]
  - Foreign body in throat [Recovered/Resolved]
  - Pharyngeal erythema [Recovered/Resolved]
  - Palatal oedema [Recovered/Resolved]
  - Lymphoid tissue hyperplasia [Recovered/Resolved]
  - Tonsillar hypertrophy [Recovered/Resolved]

NARRATIVE: CASE EVENT DATE: 20240623
